FAERS Safety Report 5724434-8 (Version None)
Quarter: 2008Q2

REPORT INFORMATION
  Report Type: 
  Country: None (occurrence: None)
  Receive Date: 20080428
  Receipt Date: 20080416
  Transmission Date: 20081010
  Serious: Yes (Death, Life-Threatening, Hospitalization)
  Sender: FDA-Public Use
  Company Number: 028-21880-08031881

PATIENT
  Age: 78 Year
  Sex: Female
  Weight: 87 kg

DRUGS (13)
  1. REVLIMID [Suspect]
     Indication: CHRONIC MYELOMONOCYTIC LEUKAEMIA
     Dosage: 10 MG, DAILY FOR 21 DAYS Q28DAYS, ORAL
     Route: 048
     Dates: start: 20080226, end: 20080317
  2. REVLIMID [Suspect]
     Indication: MYELODYSPLASTIC SYNDROME
     Dosage: 10 MG, DAILY FOR 21 DAYS Q28DAYS, ORAL
     Route: 048
     Dates: start: 20080226, end: 20080317
  3. MELPHALAN (MELPHALAN) [Suspect]
     Indication: MYELODYSPLASTIC SYNDROME
     Dosage: 2 MG, DAILY FOR 21 DAYS Q28 DAYS, ORAL
     Route: 048
     Dates: start: 20080226, end: 20080317
  4. ASPIRIN [Concomitant]
  5. OMEGA 3 (FISH OIL) (TABLETS) [Concomitant]
  6. MULTIVITAMIN [Concomitant]
  7. LECITHIN (LECITHIN) [Concomitant]
  8. FOSAMAX [Concomitant]
  9. ADVAIR DISKUS 100/50 [Concomitant]
  10. SPIRIVA [Concomitant]
  11. EFFEXOR [Concomitant]
  12. CALCIUM (CALCIUM) [Concomitant]
  13. VITAMIN D [Concomitant]

REACTIONS (10)
  - ASTHENIA [None]
  - ATELECTASIS [None]
  - BLOOD PRESSURE DECREASED [None]
  - CARDIOMEGALY [None]
  - DIARRHOEA [None]
  - LUNG INFILTRATION [None]
  - PNEUMONIA [None]
  - PULMONARY EMBOLISM [None]
  - RESPIRATORY FAILURE [None]
  - SEPSIS [None]
